FAERS Safety Report 7760770-1 (Version None)
Quarter: 2011Q3

REPORT INFORMATION
  Report Type: 
  Country: None (occurrence: None)
  Receive Date: 20110919
  Receipt Date: 20110915
  Transmission Date: 20111222
  Serious: Yes (Other)
  Sender: FDA-Public Use
  Company Number: FR-PFIZER INC-2011165740

PATIENT
  Age: 60 Year
  Sex: Male
  Weight: 74 kg

DRUGS (10)
  1. LOVENOX [Concomitant]
     Dosage: UNK
     Route: 058
     Dates: start: 20110715
  2. PLAVIX [Concomitant]
     Dosage: UNK
     Route: 048
     Dates: start: 20110715
  3. PERINDOPRIL ERBUMINE [Concomitant]
     Dosage: UNK
     Route: 048
     Dates: start: 20110716
  4. ATORVASTATIN CALCIUM [Suspect]
     Indication: MYOCARDIAL INFARCTION
  5. ATORVASTATIN CALCIUM [Suspect]
     Indication: STENT PLACEMENT
  6. NEBIVOLOL [Concomitant]
     Dosage: UNK
     Route: 048
     Dates: start: 20110716
  7. ATORVASTATIN CALCIUM [Suspect]
     Indication: ACUTE CORONARY SYNDROME
     Dosage: 40MG, DAILY
     Route: 048
     Dates: start: 20110715, end: 20110721
  8. ASPIRIN [Concomitant]
     Dosage: UNK
     Route: 048
     Dates: start: 20110715
  9. NEXIUM [Concomitant]
     Dosage: UNK
  10. LEXOMIL [Concomitant]
     Dosage: UNK
     Route: 048
     Dates: start: 20110716

REACTIONS (4)
  - GAMMA-GLUTAMYLTRANSFERASE INCREASED [None]
  - ALANINE AMINOTRANSFERASE INCREASED [None]
  - ASPARTATE AMINOTRANSFERASE INCREASED [None]
  - CELL DEATH [None]
